FAERS Safety Report 5526366-7 (Version None)
Quarter: 2007Q4

REPORT INFORMATION
  Report Type: 
  Country: None (occurrence: None)
  Receive Date: 20071121
  Receipt Date: 20071121
  Transmission Date: 20080405
  Serious: Yes (Hospitalization)
  Sender: FDA-Public Use
  Company Number: None

PATIENT
  Age: 76 Year
  Sex: Female
  Weight: 56 kg

DRUGS (2)
  1. SYMBYAX [Suspect]
     Indication: BIPOLAR DISORDER
     Dates: start: 20061113, end: 20071118
  2. SYMBYAX [Suspect]
     Indication: HALLUCINATION
     Dates: start: 20061113, end: 20071118

REACTIONS (4)
  - ATROPHY [None]
  - ELECTROENCEPHALOGRAM ABNORMAL [None]
  - ENCEPHALOPATHY [None]
  - GRAND MAL CONVULSION [None]
